FAERS Safety Report 9506111 (Version 1)
Quarter: 2013Q1

REPORT INFORMATION
  Report Type: Spontaneous
  Country: US (occurrence: None)
  Receive Date: 20130305
  Receipt Date: 20130305
  Transmission Date: 20140127
  Serious: No
  Sender: FDA-Public Use
  Company Number: 1000040015

PATIENT
  Age: 78 Year
  Sex: Male

DRUGS (5)
  1. DALIRESP (ROFLUMILAST) (500 MICROGRAM, TABLETS) [Suspect]
     Indication: CHRONIC OBSTRUCTIVE PULMONARY DISEASE
     Dosage: (500 MCG, 1 IN 1 D), ORAL
     Route: 048
     Dates: start: 201209
  2. ADVAIR (SERETIDE) (SERETIDE) [Concomitant]
  3. ASPIRIN (ACETYLSALICYLIC ACID) (ACETYLSALICYLIC ACID) [Concomitant]
  4. LEVOTHYROXINE (LEVOTHYROXINE SODIUM) (LEVOTHYROXINE SODIUM) [Concomitant]
  5. MVI (VITAMINS NOS) (VITAMINS NOS) [Concomitant]

REACTIONS (1)
  - Gynaecomastia [None]
